FAERS Safety Report 23262192 (Version 1)
Quarter: 2023Q4

REPORT INFORMATION
  Report Type: Spontaneous
  Country: CZ (occurrence: CZ)
  Receive Date: 20231205
  Receipt Date: 20231205
  Transmission Date: 20240110
  Serious: Yes (Other)
  Sender: FDA-Public Use
  Company Number: CZ-AMGEN-CZESP2023215216

PATIENT
  Age: 65 Year
  Sex: Male

DRUGS (4)
  1. PANITUMUMAB [Suspect]
     Active Substance: PANITUMUMAB
     Indication: Colorectal cancer metastatic
     Dosage: UNK, CYCLE 7, 10,11
     Route: 065
     Dates: start: 201510
  2. OXALIPLATIN [Suspect]
     Active Substance: OXALIPLATIN
     Indication: Colorectal cancer metastatic
     Dosage: UNK, CYCLE 7, 10,11
     Route: 065
     Dates: start: 201510
  3. LEUCOVORIN [Suspect]
     Active Substance: LEUCOVORIN\LEUCOVORIN CALCIUM
     Indication: Colorectal cancer metastatic
     Dosage: UNK, CYCLE 7, 10,11
     Route: 065
     Dates: start: 201510
  4. FLUOROURACIL [Suspect]
     Active Substance: FLUOROURACIL
     Indication: Colorectal cancer metastatic
     Dosage: UNK, CYCLE 7, 10,11
     Route: 065
     Dates: start: 201510

REACTIONS (2)
  - Neuropathy peripheral [Unknown]
  - Metastases to liver [Unknown]

NARRATIVE: CASE EVENT DATE: 20170901
